FAERS Safety Report 4801281-2 (Version None)
Quarter: 2005Q4

REPORT INFORMATION
  Report Type: 
  Country: None (occurrence: None)
  Receive Date: 20051017
  Receipt Date: 20051007
  Transmission Date: 20060501
  Serious: Yes (Hospitalization)
  Sender: FDA-Public Use
  Company Number: CA-MERCK-0510CAN00055

PATIENT
  Age: 69 Year
  Sex: Male
  Weight: 80 kg

DRUGS (5)
  1. ZETIA [Suspect]
     Indication: HYPERCHOLESTEROLAEMIA
     Route: 048
     Dates: start: 20050817, end: 20050901
  2. PRAVASTATIN SODIUM [Concomitant]
     Indication: HYPERCHOLESTEROLAEMIA
     Route: 065
     Dates: start: 19960521
  3. LEVOTHYROXINE SODIUM [Concomitant]
     Indication: HYPOTHYROIDISM
     Route: 065
     Dates: start: 20050319, end: 20050922
  4. LEVOTHYROXINE SODIUM [Concomitant]
     Route: 065
     Dates: start: 20050922
  5. ASPIRIN [Concomitant]
     Route: 065
     Dates: start: 19960710

REACTIONS (2)
  - CORONARY ARTERY DISEASE [None]
  - DIZZINESS [None]
